FAERS Safety Report 8588663-0 (Version None)
Quarter: 2012Q3

REPORT INFORMATION
  Report Type: 
  Country: None (occurrence: None)
  Receive Date: 20120813
  Receipt Date: 20120801
  Transmission Date: 20120928
  Serious: Yes (Hospitalization)
  Sender: FDA-Public Use
  Company Number: US-BAYER-2012-079057

PATIENT
  Age: 24 Year
  Sex: Female
  Weight: 49.887 kg

DRUGS (2)
  1. IRON SULFATETHIAMIN COMPOUND TAB [Concomitant]
  2. YASMIN [Suspect]
     Dosage: UNK
     Dates: start: 20040701, end: 20050208

REACTIONS (1)
  - PULMONARY EMBOLISM [None]
